FAERS Safety Report 10085457 (Version 2)
Quarter: 2014Q2

REPORT INFORMATION
  Report Type: Spontaneous
  Country: US (occurrence: US)
  Receive Date: 20140418
  Receipt Date: 20140515
  Transmission Date: 20141212
  Serious: No
  Sender: FDA-Public Use
  Company Number: US-009507513-1404USA008857

PATIENT
  Age: 61 Year
  Sex: Male
  Weight: 72.56 kg

DRUGS (1)
  1. ASMANEX TWISTHALER [Suspect]
     Indication: COUGH
     Dosage: ONE PUFF DAILY IN THE EVENING
     Route: 055
     Dates: start: 20140412

REACTIONS (4)
  - Drug dose omission [Unknown]
  - Drug administration error [Unknown]
  - Product quality issue [Unknown]
  - No adverse event [Unknown]
